FAERS Safety Report 10082922 (Version 1)
Quarter: 2014Q2

REPORT INFORMATION
  Report Type: Spontaneous
  Country: US (occurrence: BR)
  Receive Date: 20140417
  Receipt Date: 20140417
  Transmission Date: 20141212
  Serious: Yes (Other)
  Sender: FDA-Public Use
  Company Number: 2014SP002134

PATIENT
  Age: 58 Year
  Sex: Female

DRUGS (3)
  1. METHOTREXATE [Suspect]
     Indication: PRODUCT USED FOR UNKNOWN INDICATION
  2. DIPHENHYDRAMINE HYDROCHLORIDE [Suspect]
     Indication: HYPERSENSITIVITY
  3. TOCILIZUMAB [Suspect]
     Indication: RHEUMATOID ARTHRITIS
     Dates: end: 20140324

REACTIONS (8)
  - Benign breast neoplasm [Unknown]
  - Gait disturbance [Recovering/Resolving]
  - Depression [Recovering/Resolving]
  - Nervousness [Recovering/Resolving]
  - Somnolence [Unknown]
  - Alopecia [Recovered/Resolved]
  - Pain in extremity [Unknown]
  - Insomnia [Unknown]
